FAERS Safety Report 22960925 (Version 2)
Quarter: 2023Q4

REPORT INFORMATION
  Report Type: Report from Study
  Country: JP (occurrence: JP)
  Receive Date: 20230920
  Receipt Date: 20231004
  Transmission Date: 20240110
  Serious: Yes (Hospitalization)
  Sender: FDA-Public Use
  Company Number: JP-TAIHOP-2023-007783

PATIENT
  Age: 73 Year
  Sex: Male
  Weight: 40.5 kg

DRUGS (6)
  1. FUTIBATINIB [Suspect]
     Active Substance: FUTIBATINIB
     Indication: Oesophageal carcinoma
     Dosage: CYCLE 1
     Route: 048
     Dates: start: 20230613, end: 20230619
  2. FUTIBATINIB [Suspect]
     Active Substance: FUTIBATINIB
     Dosage: CYCLE 1
     Route: 048
     Dates: start: 20230623, end: 20230629
  3. FUTIBATINIB [Suspect]
     Active Substance: FUTIBATINIB
     Dosage: CYCLE 2
     Route: 048
     Dates: start: 20230704, end: 20230712
  4. FUTIBATINIB [Suspect]
     Active Substance: FUTIBATINIB
     Dosage: CYCLE 2-4
     Route: 048
     Dates: start: 20230720, end: 20230816
  5. FUTIBATINIB [Suspect]
     Active Substance: FUTIBATINIB
     Dosage: CYCLE 4
     Route: 048
     Dates: start: 20230824, end: 20230906
  6. PEMBROLIZUMAB [Suspect]
     Active Substance: PEMBROLIZUMAB
     Indication: Oesophageal carcinoma
     Dosage: CYCLE 1?DAILY DOSE: 200 MILLIGRAM(S)
     Route: 042
     Dates: start: 20230613, end: 20230816

REACTIONS (1)
  - Interstitial lung disease [Not Recovered/Not Resolved]

NARRATIVE: CASE EVENT DATE: 20230913
